FAERS Safety Report 8623616-5 (Version None)
Quarter: 2012Q3

REPORT INFORMATION
  Report Type: 
  Country: None (occurrence: None)
  Receive Date: 20120827
  Receipt Date: 20120815
  Transmission Date: 20120928
  Serious: Yes (Other)
  Sender: FDA-Public Use
  Company Number: FI-ELI_LILLY_AND_COMPANY-FI201208005024

PATIENT
  Sex: Female

DRUGS (8)
  1. PANACOD [Concomitant]
     Indication: PAIN
     Dosage: UNK
  2. CORTISONE ACETATE [Concomitant]
     Dosage: 7.5 MG, UNKNOWN
  3. GLUCOSE [Concomitant]
     Dosage: UNK
  4. SIMVASTATIN [Concomitant]
     Indication: BLOOD CHOLESTEROL
     Dosage: UNK
  5. ACETAMINOPHEN [Concomitant]
     Indication: PAIN
     Dosage: UNK
  6. CALCIUM + VITAMIN D [Concomitant]
     Indication: MEDICAL DIET
     Dosage: UNK
  7. DIGITALIS [Concomitant]
     Indication: CARDIAC FAILURE
     Dosage: UNK
  8. FORTEO [Suspect]
     Indication: OSTEOPOROSIS
     Dosage: 20 UG, QD
     Route: 058
     Dates: start: 20120305

REACTIONS (1)
  - BONE NEOPLASM [None]
